FAERS Safety Report 7970719-4 (Version None)
Quarter: 2011Q4

REPORT INFORMATION
  Report Type: 
  Country: None (occurrence: None)
  Receive Date: 20111122
  Receipt Date: 20110725
  Transmission Date: 20120403
  Serious: No
  Sender: FDA-Public Use
  Company Number: PHHY2011US54221

PATIENT
  Age: 40 Year
  Sex: Female
  Weight: 68 kg

DRUGS (4)
  1. SYNTHROID [Concomitant]
  2. GILENYA [Suspect]
     Indication: MULTIPLE SCLEROSIS
     Dosage: 0.5 MG, DAILY, ORAL
     Route: 048
     Dates: start: 20110607
  3. VITAMIN E [Concomitant]
  4. VITAMIN D [Concomitant]

REACTIONS (1)
  - DRY SKIN [None]
